FAERS Safety Report 14751583 (Version 4)
Quarter: 2019Q3

REPORT INFORMATION
  Report Type: Spontaneous
  Country: US (occurrence: US)
  Receive Date: 20180412
  Receipt Date: 20190913
  Transmission Date: 20191004
  Serious: Yes (Other)
  Sender: FDA-Public Use
  Company Number: US-GLAXOSMITHKLINE-US2018GSK062646

PATIENT
  Sex: Female

DRUGS (4)
  1. PREVACID [Suspect]
     Active Substance: LANSOPRAZOLE
     Indication: PRODUCT USED FOR UNKNOWN INDICATION
     Dosage: UNK
     Route: 065
  2. PREVACID [Suspect]
     Active Substance: LANSOPRAZOLE
     Indication: PRODUCT USED FOR UNKNOWN INDICATION
     Dosage: UNK
     Route: 065
  3. OMEPRAZOLE. [Suspect]
     Active Substance: OMEPRAZOLE
     Indication: GASTROOESOPHAGEAL REFLUX DISEASE
     Dosage: 20 MG, QD
     Route: 048
  4. OMEPRAZOLE. [Suspect]
     Active Substance: OMEPRAZOLE
     Dosage: 40 MG, QD
     Route: 065

REACTIONS (11)
  - Chronic kidney disease-mineral and bone disorder [Unknown]
  - Hypertensive nephropathy [Unknown]
  - Renal injury [Unknown]
  - Nephrolithiasis [Unknown]
  - Proteinuria [Unknown]
  - Diabetic nephropathy [Unknown]
  - Dialysis [Not Recovered/Not Resolved]
  - Chronic kidney disease [Unknown]
  - Renal disorder [Unknown]
  - Renal transplant [Unknown]
  - Nephrosclerosis [Unknown]
